FAERS Safety Report 12549779 (Version 1)
Quarter: 2016Q3

REPORT INFORMATION
  Report Type: Spontaneous
  Country: CZ (occurrence: CZ)
  Receive Date: 20160712
  Receipt Date: 20160712
  Transmission Date: 20161109
  Serious: Yes (Other)
  Sender: FDA-Public Use
  Company Number: CZ-HQ SPECIALTY-CZ-2016INT000459

PATIENT
  Sex: Female

DRUGS (9)
  1. CISPLATIN. [Suspect]
     Active Substance: CISPLATIN
     Indication: SEROUS CYSTADENOCARCINOMA OVARY
     Dosage: 40 MG/M2, EVERY 2 WEEKS
     Dates: start: 200611, end: 200703
  2. PACLITAXEL. [Suspect]
     Active Substance: PACLITAXEL
     Indication: SEROUS CYSTADENOCARCINOMA OVARY
     Dosage: 175 MG/M2,(17 CYCLES)
  3. CARBOPLATIN. [Suspect]
     Active Substance: CARBOPLATIN
     Indication: SEROUS CYSTADENOCARCINOMA OVARY
     Dosage: AUC 6 (17 CYCLES)
  4. PACLITAXEL. [Suspect]
     Active Substance: PACLITAXEL
     Indication: BREAST CANCER
     Dosage: 175 MG/M2, EVERY THREE WEEKS (6 CYCLES)
  5. GEMCITABINE [Suspect]
     Active Substance: GEMCITABINE\GEMCITABINE HYDROCHLORIDE
     Indication: SEROUS CYSTADENOCARCINOMA OVARY
     Dosage: 1 G/M2, EVERY TWO WEEKS
     Dates: start: 200611, end: 200703
  6. PACLITAXEL. [Suspect]
     Active Substance: PACLITAXEL
     Dosage: 175 MG/M2, UNK
     Dates: end: 200602
  7. CARBOPLATIN. [Suspect]
     Active Substance: CARBOPLATIN
     Dosage: AUC 6
     Dates: end: 200602
  8. TAMOXIFEN [Suspect]
     Active Substance: TAMOXIFEN
     Indication: SEROUS CYSTADENOCARCINOMA OVARY
     Dosage: 20 MG/DAY
  9. DOXORUBICIN [Suspect]
     Active Substance: DOXORUBICIN
     Indication: BREAST CANCER
     Dosage: 50 MG/M2, EVERY THREE WEEKS (6 CYCLES)

REACTIONS (4)
  - Anaemia [Unknown]
  - Thrombocytopenia [Unknown]
  - Leukopenia [Unknown]
  - Myelodysplastic syndrome [Unknown]
